FAERS Safety Report 4388262-0 (Version None)
Quarter: 2004Q2

REPORT INFORMATION
  Report Type: 
  Country: None (occurrence: None)
  Receive Date: 20040625
  Receipt Date: 20040614
  Transmission Date: 20050107
  Serious: Yes (Hospitalization, Other)
  Sender: FDA-Public Use
  Company Number: 2004039109

PATIENT
  Sex: Male
  Weight: 136.0791 kg

DRUGS (7)
  1. NARDIL [Suspect]
     Indication: HEADACHE
     Dosage: (15 MG), ORAL
     Route: 048
  2. PREDNISONE [Suspect]
     Indication: HEADACHE
     Dosage: INTERVAL: EVERY DAY), ORAL
     Route: 048
     Dates: start: 20020601, end: 20040501
  3. DHE-45 (DIHYDROERGOTAMINE MESILATE) [Suspect]
     Indication: HEADACHE
  4. DILAUDID [Suspect]
     Indication: HEADACHE
     Dosage: DAILY INTERVAL: EVERY DAY)
  5. ALL OTHER NON-THERAPEUTIC PRODUCTS [Concomitant]
  6. METHADONE HCL [Concomitant]
  7. ALL OTHER THERAPEUTIC PRODUCTS [Concomitant]

REACTIONS (12)
  - ADRENAL DISORDER [None]
  - DECREASED ACTIVITY [None]
  - DRUG INEFFECTIVE [None]
  - DRUG INTERACTION [None]
  - FATIGUE [None]
  - HEADACHE [None]
  - HYPOMANIA [None]
  - IRRITABILITY [None]
  - MYOCARDIAL INFARCTION [None]
  - PERSONALITY CHANGE [None]
  - PHARMACEUTICAL PRODUCT COMPLAINT [None]
  - WEIGHT FLUCTUATION [None]
